FAERS Safety Report 6734289-0 (Version None)
Quarter: 2010Q2

REPORT INFORMATION
  Report Type: 
  Country: None (occurrence: None)
  Receive Date: 20100520
  Receipt Date: 20100513
  Transmission Date: 20101027
  Serious: Yes (Other)
  Sender: FDA-Public Use
  Company Number: GB-WYE-G06061510

PATIENT
  Sex: Male
  Weight: 12 kg

DRUGS (2)
  1. REFACTO [Suspect]
     Indication: FACTOR VIII DEFICIENCY
     Dosage: 0.5ML, FREQUENCY UNSPECIFIED
     Route: 030
     Dates: start: 20100206
  2. TRANEXAMIC ACID [Concomitant]
     Indication: MUCOSAL HAEMORRHAGE
     Dosage: 25 IU/KG, FREQUENCY UNSPECIFIED
     Route: 048

REACTIONS (1)
  - FACTOR VIII INHIBITION [None]
